FAERS Safety Report 5642299-X (Version None)
Quarter: 2008Q1

REPORT INFORMATION
  Report Type: 
  Country: None (occurrence: None)
  Receive Date: 20080227
  Receipt Date: 20080218
  Transmission Date: 20080703
  Serious: Yes (Hospitalization)
  Sender: FDA-Public Use
  Company Number: FR-GENENTECH-256511

PATIENT
  Sex: Male

DRUGS (3)
  1. AVASTIN [Suspect]
     Indication: ANGIOSARCOMA
     Dosage: 800 MG, QD
     Route: 042
     Dates: start: 20070821, end: 20071211
  2. TAXOTERE [Suspect]
     Indication: ANGIOSARCOMA
     Dosage: 120 MG, QD
     Route: 042
     Dates: start: 20070821, end: 20071211
  3. CARBOPLATIN [Suspect]
     Indication: ANGIOSARCOMA
     Dosage: 500 MG, QD
     Route: 042
     Dates: start: 20070821, end: 20071211

REACTIONS (2)
  - PALMAR-PLANTAR ERYTHRODYSAESTHESIA SYNDROME [None]
  - SKIN EXFOLIATION [None]
